FAERS Safety Report 11427888 (Version 1)
Quarter: 2015Q3

REPORT INFORMATION
  Report Type: Report from Study
  Country: IN (occurrence: IN)
  Receive Date: 20150828
  Receipt Date: 20150828
  Transmission Date: 20151125
  Serious: Yes (Death, Hospitalization)
  Sender: FDA-Public Use
  Company Number: IN-UNITED THERAPEUTICS LTD.-UTC-000746

PATIENT
  Age: 33 Year
  Sex: Female
  Weight: 45 kg

DRUGS (4)
  1. UT-15C SR [Suspect]
     Active Substance: TREPROSTINIL DIOLAMINE
     Route: 048
     Dates: start: 20081215
  2. FRUSALAC DS [Concomitant]
     Indication: POLYURIA
     Route: 048
     Dates: start: 20080828
  3. UT-15C SR [Suspect]
     Active Substance: TREPROSTINIL DIOLAMINE
     Indication: PULMONARY ARTERIAL HYPERTENSION
  4. UT-15C SR [Suspect]
     Active Substance: TREPROSTINIL DIOLAMINE
     Route: 048
     Dates: start: 20081215, end: 20090317

REACTIONS (1)
  - Death [Fatal]

NARRATIVE: CASE EVENT DATE: 20091202
